FAERS Safety Report 23386551 (Version 2)
Quarter: 2024Q1

REPORT INFORMATION
  Report Type: Spontaneous
  Country: US (occurrence: US)
  Receive Date: 20240110
  Receipt Date: 20240129
  Transmission Date: 20240409
  Serious: Yes (Hospitalization, Other)
  Sender: FDA-Public Use
  Company Number: US-SA-2024SA006676

PATIENT
  Age: 40 Year
  Sex: Male

DRUGS (2)
  1. OXALIPLATIN [Suspect]
     Active Substance: OXALIPLATIN
     Indication: Rectal adenocarcinoma
     Dosage: UNK UNK, QCY
  2. CAPECITABINE [Suspect]
     Active Substance: CAPECITABINE
     Indication: Rectal adenocarcinoma
     Dosage: UNK UNK, QCY

REACTIONS (12)
  - Acute febrile neutrophilic dermatosis [Recovered/Resolved]
  - Skin mass [Recovered/Resolved]
  - Pyrexia [Recovered/Resolved]
  - Tenderness [Recovered/Resolved]
  - Skin plaque [Recovered/Resolved]
  - Pustule [Recovered/Resolved]
  - Erythema [Recovered/Resolved]
  - Joint swelling [Recovered/Resolved]
  - Joint range of motion decreased [Recovered/Resolved]
  - Skin oedema [Recovered/Resolved]
  - Swelling [Recovered/Resolved]
  - Skin lesion [Recovered/Resolved]
